FAERS Safety Report 6380291-0 (Version None)
Quarter: 2009Q3

REPORT INFORMATION
  Report Type: 
  Country: None (occurrence: None)
  Receive Date: 20090929
  Receipt Date: 20090613
  Transmission Date: 20100115
  Serious: Yes (Hospitalization, Other)
  Sender: FDA-Public Use
  Company Number: GB-AVENTIS-200916055GDDC

PATIENT
  Sex: Female
  Weight: 105.23 kg

DRUGS (17)
  1. APIDRA [Suspect]
  2. APIDRA [Suspect]
  3. LANTUS [Suspect]
  4. LANTUS [Suspect]
  5. ADCAL D3 [Concomitant]
     Indication: CUSHING'S SYNDROME
     Dosage: DOSE QUANTITY: 1
  6. ALENDRONIC ACID [Concomitant]
     Indication: CUSHING'S SYNDROME
  7. CLOPIDOGREL [Concomitant]
     Indication: CHEST PAIN
  8. SALBUTAMOL SULPHATE [Concomitant]
     Indication: ASTHMA
  9. LANSOPRAZOLE [Concomitant]
     Indication: GASTRITIS
  10. SIMVASTATIN [Concomitant]
  11. METFORMIN HCL [Concomitant]
     Indication: TYPE 2 DIABETES MELLITUS
  12. LEVOTHYROXINE SODIUM [Concomitant]
     Indication: THYROID DISORDER
  13. CITALOPRAM [Concomitant]
  14. PREGABALIN [Concomitant]
  15. LOSARTAN [Concomitant]
  16. GAVISCON [Concomitant]
  17. SIMPLE LINCTUS [Concomitant]

REACTIONS (17)
  - ASTHENIA [None]
  - BLOOD GLUCOSE INCREASED [None]
  - CONFUSIONAL STATE [None]
  - COSTOCHONDRITIS [None]
  - CUSHING'S SYNDROME [None]
  - DYSPNOEA [None]
  - EPILEPSY [None]
  - FALL [None]
  - FEELING ABNORMAL [None]
  - HALLUCINATION [None]
  - HYPERTENSION [None]
  - HYPOGLYCAEMIA [None]
  - IRON DEFICIENCY ANAEMIA [None]
  - PANIC ATTACK [None]
  - PITUITARY TUMOUR [None]
  - RENAL FAILURE ACUTE [None]
  - SENSORY LOSS [None]
